FAERS Safety Report 16225216 (Version 1)
Quarter: 2019Q2

REPORT INFORMATION
  Report Type: Spontaneous
  Country: FR (occurrence: FR)
  Receive Date: 20190422
  Receipt Date: 20190422
  Transmission Date: 20190711
  Serious: Yes (Other)
  Sender: FDA-Public Use
  Company Number: FR-MYLANLABS-2019M1038139

PATIENT
  Age: 21 Year
  Sex: Female

DRUGS (10)
  1. ARIXTRA [Suspect]
     Active Substance: FONDAPARINUX SODIUM
     Indication: THROMBOSIS PROPHYLAXIS
     Dosage: 1 DOSAGE FORM, QD
     Route: 058
     Dates: start: 20190208, end: 20190226
  2. LOXAPAC                            /00401801/ [Concomitant]
     Active Substance: LOXAPINE
     Dosage: UNK
  3. TERALITHE [Concomitant]
     Active Substance: LITHIUM CARBONATE
     Dosage: UNK
  4. TERCIAN                            /00759301/ [Suspect]
     Active Substance: CYAMEMAZINE
     Indication: MANIA
     Dosage: UNK VARIABLE
     Route: 048
  5. ARIPIPRAZOLE. [Concomitant]
     Active Substance: ARIPIPRAZOLE
     Dosage: UNK
  6. ADEPAL [Suspect]
     Active Substance: ETHINYL ESTRADIOL\LEVONORGESTREL
     Indication: CONTRACEPTION
     Dosage: 1 DOSAGE FORM, QD
     Route: 048
     Dates: start: 20190213, end: 20190222
  7. DIAZEPAM. [Suspect]
     Active Substance: DIAZEPAM
     Indication: MANIA
     Dosage: UNK VARIABLE
     Route: 048
  8. THERALENE [Suspect]
     Active Substance: TRIMEPRAZINE
     Indication: MANIA
     Dosage: 30 MILLIGRAM, QD
     Route: 048
     Dates: start: 20190209, end: 20190217
  9. LORMETAZEPAM [Concomitant]
     Active Substance: LORMETAZEPAM
     Dosage: UNK
     Dates: start: 20190208, end: 20190306
  10. LEPTICUR [Concomitant]
     Active Substance: TROPATEPINE HYDROCHLORIDE
     Dosage: UNK
     Dates: start: 20190205, end: 20190207

REACTIONS (1)
  - Hepatocellular injury [Recovering/Resolving]

NARRATIVE: CASE EVENT DATE: 201902
